FAERS Safety Report 7791011-7 (Version None)
Quarter: 2011Q4

REPORT INFORMATION
  Report Type: 
  Country: None (occurrence: None)
  Receive Date: 20111003
  Receipt Date: 20110926
  Transmission Date: 20120403
  Serious: Yes (Hospitalization)
  Sender: FDA-Public Use
  Company Number: US-BIOGENIDEC-2010BI044171

PATIENT
  Age: 37 Year
  Sex: Female

DRUGS (2)
  1. TYSABRI [Suspect]
     Indication: MULTIPLE SCLEROSIS
     Route: 042
     Dates: start: 20090205
  2. CYMBALTA [Concomitant]
     Dates: end: 20110825

REACTIONS (5)
  - HEPATIC STEATOSIS [None]
  - PAIN IN EXTREMITY [None]
  - NAUSEA [None]
  - PAIN [None]
  - FATIGUE [None]
